FAERS Safety Report 6340236-6 (Version None)
Quarter: 2009Q3

REPORT INFORMATION
  Report Type: 
  Country: None (occurrence: None)
  Receive Date: 20090902
  Receipt Date: 20090729
  Transmission Date: 20100115
  Serious: Yes (Other)
  Sender: FDA-Public Use
  Company Number: JPI-P-008118

PATIENT
  Age: 32 Year
  Sex: Female
  Weight: 177.5 kg

DRUGS (5)
  1. LUVOX CR [Suspect]
     Indication: OBSESSIVE-COMPULSIVE DISORDER
     Dosage: 100 MG (100 MG, 1 IN 1 D), ORAL
     Route: 048
     Dates: start: 20090617, end: 20090617
  2. LUVOX CR [Suspect]
     Indication: PANIC DISORDER WITH AGORAPHOBIA
     Dosage: 100 MG (100 MG, 1 IN 1 D), ORAL
     Route: 048
     Dates: start: 20090617, end: 20090617
  3. ZOLPIDEM TARTRATE [Concomitant]
  4. LORAZEPAM [Concomitant]
  5. ALPRAZOLAM [Concomitant]

REACTIONS (4)
  - ALCOHOL POISONING [None]
  - DISSOCIATION [None]
  - DYSARTHRIA [None]
  - ROAD TRAFFIC ACCIDENT [None]
